FAERS Safety Report 18918009 (Version 4)
Quarter: 2021Q1

REPORT INFORMATION
  Report Type: Report from Study
  Country: None (occurrence: IL)
  Receive Date: 20210220
  Receipt Date: 20210312
  Transmission Date: 20210420
  Serious: Yes (Death, Hospitalization, Other)
  Sender: FDA-Public Use
  Company Number: IL-ABBVIE-21K-082-3775448-00

PATIENT
  Age: 52 Year
  Sex: Male

DRUGS (2)
  1. DUODOPA [Suspect]
     Active Substance: CARBIDOPA\LEVODOPA
     Indication: PARKINSON^S DISEASE
     Route: 050
     Dates: start: 20201228
  2. DUODOPA [Suspect]
     Active Substance: CARBIDOPA\LEVODOPA

REACTIONS (12)
  - Loss of consciousness [Unknown]
  - Renal impairment [Unknown]
  - Surgery [Unknown]
  - Resuscitation [Unknown]
  - Tracheostomy [Unknown]
  - Peritonitis [Unknown]
  - Complication associated with device [Unknown]
  - Acute kidney injury [Unknown]
  - Heart rate increased [Unknown]
  - Death [Fatal]
  - Unresponsive to stimuli [Unknown]
  - Respiratory rate increased [Unknown]

NARRATIVE: CASE EVENT DATE: 20210309
